FAERS Safety Report 13026437 (Version 1)
Quarter: 2016Q4

REPORT INFORMATION
  Report Type: Spontaneous
  Country: US (occurrence: US)
  Receive Date: 20161214
  Receipt Date: 20161214
  Transmission Date: 20170207
  Serious: Yes (Life-Threatening, Hospitalization)
  Sender: FDA-Public Use
  Company Number: US-SA-2016SA227739

PATIENT

DRUGS (1)
  1. LEMTRADA [Suspect]
     Active Substance: ALEMTUZUMAB
     Route: 041

REACTIONS (7)
  - Blood pressure increased [Unknown]
  - Asthenia [Unknown]
  - Back pain [Unknown]
  - Ill-defined disorder [Unknown]
  - Headache [Unknown]
  - Neck pain [Unknown]
  - Influenza like illness [Unknown]
